FAERS Safety Report 4963406-8 (Version None)
Quarter: 2006Q2

REPORT INFORMATION
  Report Type: 
  Country: None (occurrence: None)
  Receive Date: 20060405
  Receipt Date: 20060217
  Transmission Date: 20061013
  Serious: Yes (Hospitalization)
  Sender: FDA-Public Use
  Company Number: 2006UW03109

PATIENT
  Age: 67 Year
  Sex: Female

DRUGS (11)
  1. LOSEC [Suspect]
     Route: 048
  2. DOMPERIDONE [Concomitant]
     Route: 048
  3. VITAMIN D [Concomitant]
  4. CALCIUM + VITAMIN D [Concomitant]
  5. LEVOTHYROXINE SODIUM [Concomitant]
     Indication: THYROID DISORDER
     Dosage: 1 TAB QD
     Route: 048
  6. FLOVENT [Concomitant]
     Indication: ASTHMA
     Route: 055
  7. VENTOLIN [Concomitant]
     Indication: ASTHMA
     Route: 055
  8. PARIET [Concomitant]
  9. INSULIN [Concomitant]
  10. PREDNISONE [Concomitant]
  11. ARTHRITIS MEDICATION [Concomitant]

REACTIONS (1)
  - GASTRIC OPERATION [None]
